FAERS Safety Report 8543285-2 (Version None)
Quarter: 2012Q3

REPORT INFORMATION
  Report Type: 
  Country: None (occurrence: None)
  Receive Date: 20120716
  Receipt Date: 20120709
  Transmission Date: 20120928
  Serious: Yes (Hospitalization)
  Sender: FDA-Public Use
  Company Number: 7145990

PATIENT
  Age: 89 Year
  Sex: Female

DRUGS (5)
  1. LEVOTHYROXINE SODIUM [Suspect]
     Indication: PRODUCT USED FOR UNKNOWN INDICATION
     Dosage: 100 MCG (100 MCG, 1 IN 1D), ORAL
     Route: 048
  2. APROVEL (IRBESRTAN) [Concomitant]
  3. SIMVASTATIN [Suspect]
     Indication: HYPERCHOLESTEROLAEMIA
     Dosage: 20 MG (20 MG, 1 IN 1 D), ORAL
     Route: 048
  4. PREVISCAN (FLUINDIONE) (FLUINDIONE) [Suspect]
     Indication: HYPERTENSIVE HEART DISEASE
     Dosage: 1 IN 1 D, ORAL
     Route: 048
     Dates: end: 20120527
  5. CORDARONE [Suspect]
     Indication: HYPERTENSION
     Dosage: 200 MG (200 MG, 5/7 DAYS), ORAL
     Route: 048

REACTIONS (4)
  - CEREBRAL HAEMATOMA [None]
  - HAEMATOMA [None]
  - INTERNATIONAL NORMALISED RATIO INCREASED [None]
  - FALL [None]
